FAERS Safety Report 9474983 (Version 2)
Quarter: 2013Q3

REPORT INFORMATION
  Report Type: Spontaneous
  Country: FR (occurrence: FR)
  Receive Date: 20130824
  Receipt Date: 20130916
  Transmission Date: 20140515
  Serious: Yes (Life-Threatening, Hospitalization)
  Sender: FDA-Public Use
  Company Number: FR-ROCHE-1265336

PATIENT
  Age: 67 Year
  Sex: Male

DRUGS (3)
  1. APRANAX [Suspect]
     Indication: ARTHRALGIA
     Dosage: 550 MG
     Route: 048
     Dates: start: 20130802, end: 20130807
  2. MOPRAL (FRANCE) [Suspect]
     Indication: PRODUCT USED FOR UNKNOWN INDICATION
     Dosage: 20 MG
     Route: 048
     Dates: start: 20130501, end: 20130507
  3. VESICARE [Concomitant]

REACTIONS (3)
  - Acute pulmonary oedema [Recovered/Resolved]
  - Hypertensive crisis [Recovered/Resolved]
  - Dyspnoea [Recovered/Resolved]
